FAERS Safety Report 8346562-3 (Version None)
Quarter: 2012Q2

REPORT INFORMATION
  Report Type: 
  Country: None (occurrence: None)
  Receive Date: 20120509
  Receipt Date: 20120430
  Transmission Date: 20120825
  Serious: Yes (Disabling, Other)
  Sender: FDA-Public Use
  Company Number: PHEH2012US008258

PATIENT
  Sex: Female

DRUGS (13)
  1. CRESTOR [Concomitant]
     Dosage: 2 MG, UNK
  2. GILENYA [Suspect]
     Indication: RELAPSING-REMITTING MULTIPLE SCLEROSIS
     Dosage: 0.5 MG, QD
     Route: 048
     Dates: start: 20120404
  3. HYDROCHLOROTHIAZIDE [Concomitant]
     Dosage: 12.5 MG, QD
     Dates: start: 20090825
  4. NORVASC [Concomitant]
     Dosage: 5 MG, QD
     Dates: start: 20090825
  5. DIURETICS [Concomitant]
     Indication: OEDEMA PERIPHERAL
  6. SYNTHROID [Concomitant]
     Dosage: 25 UG, QD
     Dates: start: 20090825
  7. RECLAST [Concomitant]
  8. TOPROL-XL [Concomitant]
     Dosage: 100 MG, QD
     Dates: start: 20090825
  9. PRILOSEC [Concomitant]
     Dosage: 20 MG, QD
     Dates: start: 20090825
  10. ZYRTEC [Concomitant]
     Dates: start: 20120404
  11. PROVIGIL [Concomitant]
     Dosage: 200 MG, UNK
  12. VOLTAREN [Concomitant]
     Dosage: 100 MG, BID
     Dates: start: 20090825
  13. CYMBALTA [Concomitant]
     Dosage: 60 MG, QD
     Dates: start: 20090825

REACTIONS (14)
  - BLOOD CHLORIDE DECREASED [None]
  - RENAL FAILURE [None]
  - PRESYNCOPE [None]
  - RED BLOOD CELL COUNT DECREASED [None]
  - PARAESTHESIA [None]
  - BLOOD CREATININE INCREASED [None]
  - RENAL IMPAIRMENT [None]
  - MALAISE [None]
  - BLOOD PRESSURE DECREASED [None]
  - LYMPHOEDEMA [None]
  - BLOOD UREA INCREASED [None]
  - URINARY INCONTINENCE [None]
  - OEDEMA PERIPHERAL [None]
  - WHITE BLOOD CELL COUNT DECREASED [None]
